FAERS Safety Report 9434746 (Version 2)
Quarter: 2014Q1

REPORT INFORMATION
  Report Type: Report from Study
  Country: JP (occurrence: JP)
  Receive Date: 20130801
  Receipt Date: 20140102
  Transmission Date: 20141002
  Serious: Yes (Life-Threatening)
  Sender: FDA-Public Use
  Company Number: JP-ROCHE-1254335

PATIENT
  Age: 63 Year
  Sex: Male

DRUGS (14)
  1. GRTPA [Suspect]
     Indication: THROMBOTIC CEREBRAL INFARCTION
     Route: 042
     Dates: start: 20110910, end: 20110910
  2. RADICUT [Suspect]
     Indication: THROMBOTIC CEREBRAL INFARCTION
     Route: 041
     Dates: start: 20110910, end: 20110923
  3. BAYASPIRIN [Suspect]
     Indication: THROMBOTIC CEREBRAL INFARCTION
     Route: 048
     Dates: start: 20110912, end: 20110913
  4. AMARYL [Concomitant]
     Route: 048
     Dates: start: 20110921, end: 20110930
  5. LOXONIN [Concomitant]
     Route: 048
     Dates: start: 20110916, end: 20110922
  6. OZAGREL SODIUM [Concomitant]
     Dosage: DAILY DOSE: 8 AMP
     Route: 042
     Dates: start: 20110911, end: 20110912
  7. ARTIST [Concomitant]
     Route: 048
     Dates: start: 20110913, end: 20110930
  8. ADALAT CR [Concomitant]
     Route: 048
     Dates: start: 20130918, end: 20130930
  9. DIOVAN [Concomitant]
     Route: 048
     Dates: start: 20110914, end: 20110914
  10. DIOVAN [Concomitant]
     Route: 048
     Dates: start: 20110915, end: 20110930
  11. AMLODINE [Concomitant]
     Route: 048
     Dates: start: 20110915, end: 20110930
  12. FAMOTIDINE D [Concomitant]
     Route: 048
     Dates: start: 20110916, end: 20110930
  13. MEXITIL [Concomitant]
     Route: 048
     Dates: start: 20110920, end: 20110930
  14. CONIEL [Concomitant]
     Route: 048
     Dates: start: 20110920, end: 20110930

REACTIONS (2)
  - Aortic dissection [Recovering/Resolving]
  - Peripheral artery dissection [Recovering/Resolving]
